FAERS Safety Report 4400855-0 (Version None)
Quarter: 2004Q3

REPORT INFORMATION
  Report Type: 
  Country: None (occurrence: None)
  Receive Date: 20040907
  Receipt Date: 20030707
  Transmission Date: 20050211
  Serious: No
  Sender: FDA-Public Use
  Company Number: US-BRISTOL-MYERS SQUIBB COMPANY-12319463

PATIENT
  Age: 73 Year
  Sex: Male
  Weight: 78 kg

DRUGS (4)
  1. COUMADIN [Suspect]
     Indication: HEART VALVE REPLACEMENT
     Dosage: DOSE VALUE:  TWO 2 MG TABLETS ALTERNATING WITH ONE 2 MG + TWO 1 MG TABLET.
     Route: 048
     Dates: start: 19940101
  2. VASOTEC [Concomitant]
  3. ATENOLOL [Concomitant]
  4. THYROID SUPPLEMENT [Concomitant]

REACTIONS (1)
  - INTERNATIONAL NORMALISED RATIO ABNORMAL [None]
